FAERS Safety Report 25778018 (Version 1)
Quarter: 2025Q3

REPORT INFORMATION
  Report Type: Spontaneous
  Country: EU (occurrence: EU)
  Receive Date: 20250909
  Receipt Date: 20250909
  Transmission Date: 20251020
  Serious: Yes (Hospitalization)
  Sender: RANBAXY
  Company Number: EU-AEMPS-1560623

PATIENT
  Age: 74 Year
  Sex: Male

DRUGS (6)
  1. ENALAPRIL [Interacting]
     Active Substance: ENALAPRIL
     Indication: Hypertension
     Dosage: 20 MILLIGRAM, DAILY
     Route: 048
     Dates: start: 202307, end: 20240722
  2. RACECADOTRIL [Interacting]
     Active Substance: RACECADOTRIL
     Indication: Diarrhoea
     Dosage: 300 MILLIGRAM, DAILY
     Route: 048
     Dates: start: 20240719, end: 20240722
  3. ASPIRIN [Concomitant]
     Active Substance: ASPIRIN
     Indication: Cerebrovascular accident
     Dosage: 100 MILLIGRAM, DAILY
     Route: 048
     Dates: start: 20201223, end: 20240722
  4. SILODOSIN [Concomitant]
     Active Substance: SILODOSIN
     Indication: Benign prostatic hyperplasia
     Dosage: 8 MILLIGRAM, DAILY
     Route: 048
     Dates: start: 202401, end: 20240722
  5. FERBISOL [Concomitant]
     Indication: Anaemia
     Dosage: 100 MILLIGRAM, DAILY
     Route: 048
     Dates: start: 202402, end: 20240722
  6. ATORVASTATIN [Concomitant]
     Active Substance: ATORVASTATIN
     Indication: Dyslipidaemia
     Dosage: 40 MILLIGRAM, DAILY
     Route: 048
     Dates: start: 20201223, end: 20220722

REACTIONS (1)
  - Angioedema [Recovered/Resolved]

NARRATIVE: CASE EVENT DATE: 20240722
